FAERS Safety Report 20617786 (Version 4)
Quarter: 2023Q2

REPORT INFORMATION
  Report Type: Spontaneous
  Country: US (occurrence: US)
  Receive Date: 20220321
  Receipt Date: 20230516
  Transmission Date: 20230721
  Serious: Yes (Other)
  Sender: FDA-Public Use
  Company Number: US-PFIZER INC-202200327415

PATIENT
  Age: 75 Year
  Sex: Female
  Weight: 74.84 kg

DRUGS (3)
  1. IBRANCE [Suspect]
     Active Substance: PALBOCICLIB
     Indication: Breast cancer female
     Dosage: 125 MG
     Dates: start: 20220207, end: 20220222
  2. IBRANCE [Suspect]
     Active Substance: PALBOCICLIB
     Dosage: 100 MG
     Dates: start: 20220306
  3. IBRANCE [Suspect]
     Active Substance: PALBOCICLIB
     Dosage: 75 MG ONCE A DAY FOR 21 DAYS THEN OFF FOR 7 DAYS
     Dates: start: 202210

REACTIONS (10)
  - Intestinal obstruction [Unknown]
  - White blood cell count decreased [Unknown]
  - Cheilitis [Recovered/Resolved]
  - Headache [Unknown]
  - Lip blister [Recovered/Resolved]
  - Constipation [Not Recovered/Not Resolved]
  - Lip dry [Unknown]
  - Toothache [Unknown]
  - Skin lesion [Unknown]
  - Product dose omission issue [Unknown]

NARRATIVE: CASE EVENT DATE: 20220101
